FAERS Safety Report 6784400-0 (Version None)
Quarter: 2010Q2

REPORT INFORMATION
  Report Type: 
  Country: None (occurrence: None)
  Receive Date: 20100617
  Receipt Date: 20100602
  Transmission Date: 20101027
  Serious: Yes (Hospitalization, Other)
  Sender: FDA-Public Use
  Company Number: SPI201000150

PATIENT
  Age: 71 Year
  Sex: Female
  Weight: 58 kg

DRUGS (2)
  1. AMITIZA [Suspect]
     Indication: CONSTIPATION
     Dosage: 24 MCG, BID, ORAL
     Route: 048
     Dates: start: 20100522, end: 20100525
  2. AMITIZA [Suspect]
     Indication: INTESTINAL OBSTRUCTION
     Dosage: 24 MCG, BID, ORAL
     Route: 048
     Dates: start: 20100522, end: 20100525

REACTIONS (5)
  - APPARENT DEATH [None]
  - FALL [None]
  - MALAISE [None]
  - NAUSEA [None]
  - SHOCK [None]
